FAERS Safety Report 4839431-4 (Version None)
Quarter: 2005Q4

REPORT INFORMATION
  Report Type: 
  Country: None (occurrence: None)
  Receive Date: 20051129
  Receipt Date: 20050412
  Transmission Date: 20060501
  Serious: Yes (Hospitalization, Other)
  Sender: FDA-Public Use
  Company Number: US-MERCK-0504USA01832

PATIENT
  Age: 44 Year
  Sex: Female
  Weight: 155 kg

DRUGS (14)
  1. VIOXX [Suspect]
     Indication: COMPLEX REGIONAL PAIN SYNDROME
     Route: 048
     Dates: start: 20001101, end: 20030801
  2. VIOXX [Suspect]
     Route: 048
  3. VIOXX [Suspect]
     Indication: OSTEOARTHRITIS
     Route: 048
     Dates: start: 20001101, end: 20030801
  4. VIOXX [Suspect]
     Route: 048
  5. OXYCONTIN [Concomitant]
     Route: 065
  6. LIDODERM [Concomitant]
     Route: 065
  7. MIACALCIN [Concomitant]
     Indication: OSTEOPENIA
     Route: 065
  8. HYDROCODONE BITARTRATE [Concomitant]
     Route: 065
  9. ELAVIL [Concomitant]
     Route: 065
  10. OXYIR [Concomitant]
     Route: 065
  11. NEURONTIN [Concomitant]
     Route: 065
  12. ROXICODONE [Concomitant]
     Route: 065
  13. [THERAPY UNSPECIFIED] [Concomitant]
     Route: 065
  14. [THERAPY UNSPECIFIED] [Concomitant]
     Route: 065

REACTIONS (13)
  - ANAEMIA [None]
  - ARTHRALGIA [None]
  - CARDIAC FAILURE CONGESTIVE [None]
  - CRYING [None]
  - DEPRESSION [None]
  - GASTROOESOPHAGEAL REFLUX DISEASE [None]
  - INSOMNIA [None]
  - MYOCARDIAL INFARCTION [None]
  - ORTHOSTATIC HYPOTENSION [None]
  - OSTEOARTHRITIS [None]
  - PULMONARY HYPERTENSION [None]
  - SLEEP APNOEA SYNDROME [None]
  - WEIGHT DECREASED [None]
